FAERS Safety Report 9177826 (Version 2)
Quarter: 2013Q2

REPORT INFORMATION
  Report Type: Report from Study
  Country: GB (occurrence: GB)
  Receive Date: 20130321
  Receipt Date: 20130506
  Transmission Date: 20140414
  Serious: Yes (Hospitalization, Other)
  Sender: FDA-Public Use
  Company Number: PHHO2011GB14435

PATIENT
  Sex: 0

DRUGS (5)
  1. SOM230 [Suspect]
     Indication: CARCINOID SYNDROME
     Dates: start: 20110413
  2. THYROXINE [Concomitant]
     Indication: PRIMARY HYPOTHYROIDISM
     Dosage: 50 MG, QD DAILY
     Dates: start: 2006
  3. INDAPAMIDE [Concomitant]
     Indication: HYPERTENSION
     Dosage: 1.5 MG, QD
     Dates: start: 2006
  4. ENALAPRIL [Concomitant]
     Indication: HYPERTENSION
     Dosage: 20 MG, BID
     Dates: start: 2006, end: 20110929
  5. GLICLAZIDE [Concomitant]
     Indication: DIABETES MELLITUS
     Dosage: 20 MG, BID
     Dates: start: 20110610, end: 20110923

REACTIONS (3)
  - Cholecystitis acute [Recovered/Resolved]
  - Pancreatitis [Recovered/Resolved]
  - Cholelithiasis [Recovered/Resolved]
